FAERS Safety Report 9394157 (Version 1)
Quarter: 2013Q3

REPORT INFORMATION
  Report Type: Spontaneous
  Country: DE (occurrence: DE)
  Receive Date: 20130710
  Receipt Date: 20130710
  Transmission Date: 20140515
  Serious: Yes (Death, Hospitalization, Other)
  Sender: FDA-Public Use
  Company Number: DE-CELGENEUS-062-21660-13070440

PATIENT
  Age: 66 Year
  Sex: Female

DRUGS (5)
  1. ABRAXANE [Suspect]
     Indication: BREAST CANCER METASTATIC
     Dosage: 150 MILLIGRAM/SQ. METER
     Route: 065
     Dates: start: 20120628, end: 20120712
  2. ABRAXANE [Suspect]
     Dosage: 100 MILLIGRAM/SQ. METER
     Route: 065
     Dates: start: 20121018, end: 20121108
  3. ABRAXANE [Suspect]
     Dosage: 100 MILLIGRAM/SQ. METER
     Route: 041
     Dates: start: 20130228, end: 20130307
  4. FASLODEX [Concomitant]
     Indication: BREAST CANCER METASTATIC
     Route: 065
     Dates: start: 201304
  5. ZOMETA [Concomitant]
     Indication: METASTASES TO BONE
     Route: 065
     Dates: start: 20120628, end: 20130201

REACTIONS (8)
  - Breast cancer metastatic [Fatal]
  - Pneumonia [Unknown]
  - Palmar-plantar erythrodysaesthesia syndrome [Unknown]
  - Catheter site infection [Unknown]
  - Neuropathy peripheral [Recovering/Resolving]
  - Fatigue [Recovering/Resolving]
  - Alopecia [Unknown]
  - Nausea [Recovering/Resolving]
